FAERS Safety Report 11511484 (Version 1)
Quarter: 2015Q3

REPORT INFORMATION
  Report Type: Spontaneous
  Country: PT (occurrence: PT)
  Receive Date: 20150915
  Receipt Date: 20150915
  Transmission Date: 20151125
  Serious: Yes (Death)
  Sender: FDA-Public Use
  Company Number: PT-GILEAD-2015-0170742

PATIENT
  Age: 34 Year
  Sex: Female

DRUGS (5)
  1. MIRTAZAPINE A [Suspect]
     Active Substance: MIRTAZAPINE
     Indication: POLYOMAVIRUS TEST POSITIVE
     Route: 065
  2. VISTIDE [Suspect]
     Active Substance: CIDOFOVIR
     Indication: POLYOMAVIRUS TEST POSITIVE
     Route: 065
  3. AZATHIOPRINE. [Concomitant]
     Active Substance: AZATHIOPRINE
     Indication: IMMUNOSUPPRESSANT DRUG THERAPY
     Route: 065
  4. CYTARABINE. [Suspect]
     Active Substance: CYTARABINE
     Indication: POLYOMAVIRUS TEST POSITIVE
     Dosage: UNK, CYCLICAL
     Route: 065
  5. MEFLOQUINE /00813002/ [Suspect]
     Active Substance: MEFLOQUINE
     Indication: POLYOMAVIRUS TEST POSITIVE
     Route: 065

REACTIONS (2)
  - Drug ineffective [Fatal]
  - Off label use [Not Recovered/Not Resolved]
